FAERS Safety Report 8920708 (Version 1)
Quarter: 2012Q4

REPORT INFORMATION
  Report Type: 
  Country: FR (occurrence: FR)
  Receive Date: 20121122
  Receipt Date: 20121122
  Transmission Date: 20130627
  Serious: Yes (Hospitalization)
  Sender: FDA-Public Use
  Company Number: FR-009507513-1211FRA008387

PATIENT
  Age: 67 Year
  Sex: Male

DRUGS (15)
  1. JANUVIA [Suspect]
     Dosage: UNK
     Route: 048
     Dates: start: 2009
  2. XELEVIA [Suspect]
     Dosage: UNK
     Route: 048
     Dates: start: 20120505, end: 20120525
  3. RANIPLEX [Concomitant]
  4. XATRAL [Concomitant]
  5. BECOTIDE [Concomitant]
  6. VENTOLINE (ALBUTEROL) [Concomitant]
  7. VASTEN [Concomitant]
     Indication: DYSLIPIDAEMIA
  8. LASILIX [Concomitant]
     Indication: HYPERTENSION
  9. COVERSYL (PERINDOPRIL ARGININE) [Concomitant]
     Indication: HYPERTENSION
  10. ISOPTINE [Concomitant]
     Indication: HYPERTENSION
  11. PLAVIX [Concomitant]
  12. KARDEGIC [Concomitant]
  13. SINTROM [Concomitant]
  14. PROCORALAN [Concomitant]
  15. NATISPRAY [Concomitant]

REACTIONS (4)
  - Nausea [Recovered/Resolved]
  - Abdominal pain upper [Recovered/Resolved]
  - Erythema [Recovered/Resolved]
  - Oedema peripheral [Recovered/Resolved]
